FAERS Safety Report 12781250 (Version 2)
Quarter: 2016Q4

REPORT INFORMATION
  Report Type: Report from Study
  Country: DE (occurrence: DE)
  Receive Date: 20160926
  Receipt Date: 20161028
  Transmission Date: 20170207
  Serious: Yes (Death, Hospitalization)
  Sender: FDA-Public Use
  Company Number: DE-OTSUKA-2016_022764

PATIENT
  Age: 83 Year
  Sex: Male
  Weight: 65 kg

DRUGS (2)
  1. *JNJ-56022473 [Suspect]
     Active Substance: INVESTIGATIONAL PRODUCT
     Indication: ACUTE MYELOID LEUKAEMIA
     Dosage: 585 MG CYCLE 1 DAY 8 AND 22
     Route: 042
     Dates: start: 20160815, end: 20160829
  2. DECITABINE. [Suspect]
     Active Substance: DECITABINE
     Indication: ACUTE MYELOID LEUKAEMIA
     Dosage: 36.2 MG
     Route: 042
     Dates: start: 20160808

REACTIONS (3)
  - Lung infection [Not Recovered/Not Resolved]
  - Septic shock [Fatal]
  - Pericardial effusion [Not Recovered/Not Resolved]

NARRATIVE: CASE EVENT DATE: 20160915
